FAERS Safety Report 7021973-7 (Version None)
Quarter: 2010Q3

REPORT INFORMATION
  Report Type: 
  Country: None (occurrence: None)
  Receive Date: 20100930
  Receipt Date: 20100920
  Transmission Date: 20110219
  Serious: Yes (Hospitalization)
  Sender: FDA-Public Use
  Company Number: AT-JNJFOC-20100905588

PATIENT
  Sex: Male
  Weight: 105 kg

DRUGS (6)
  1. RISPERDAL CONSTA [Suspect]
     Indication: SCHIZOPHRENIA
     Route: 030
  2. RISPERDAL CONSTA [Suspect]
     Route: 030
  3. HALDOL [Suspect]
     Indication: SCHIZOPHRENIA
     Route: 065
  4. RISPERDAL [Suspect]
     Indication: SCHIZOPHRENIA
     Dosage: RISPERDAL ORAL IF NEEDED
     Route: 048
  5. HALOPERIDOL DECANOATE [Suspect]
     Indication: SCHIZOPHRENIA
     Route: 065
  6. DOMINAL [Concomitant]
     Route: 065

REACTIONS (4)
  - CONDITION AGGRAVATED [None]
  - DRUG LEVEL DECREASED [None]
  - PSYCHOTIC DISORDER [None]
  - TREATMENT NONCOMPLIANCE [None]
